FAERS Safety Report 18529009 (Version 1)
Quarter: 2020Q4

REPORT INFORMATION
  Report Type: Spontaneous
  Country: CN (occurrence: CN)
  Receive Date: 20201120
  Receipt Date: 20201120
  Transmission Date: 20210114
  Serious: Yes (Congenital Anomaly)
  Sender: FDA-Public Use
  Company Number: CN-ASTRAZENECA-2020SF51328

PATIENT
  Age: 68 Year
  Sex: Male
  Weight: 68 kg

DRUGS (14)
  1. FLURBIPROFEN AXETIL INJECTION [Suspect]
     Active Substance: FLURBIPROFEN AXETIL
     Indication: ANALGESIC THERAPY
     Route: 041
     Dates: start: 20201025, end: 20201105
  2. DIFENE [Suspect]
     Active Substance: DICLOFENAC SODIUM
     Indication: ANALGESIC THERAPY
     Route: 048
     Dates: start: 20201020, end: 20201025
  3. DIFENE [Suspect]
     Active Substance: DICLOFENAC SODIUM
     Indication: ANALGESIC THERAPY
     Route: 048
     Dates: start: 20201101, end: 20201105
  4. SODIUM CHLORIDE INJECTION [Concomitant]
     Active Substance: SODIUM CHLORIDE
     Indication: ILL-DEFINED DISORDER
     Route: 058
     Dates: start: 20201025, end: 20201031
  5. SODIUM CHLORIDE INJECTION [Concomitant]
     Active Substance: SODIUM CHLORIDE
     Indication: ILL-DEFINED DISORDER
     Route: 058
     Dates: start: 20201101, end: 20201103
  6. OCTREOTIDE ACETATE FOR INJECTION [Suspect]
     Active Substance: OCTREOTIDE ACETATE
     Indication: RECTAL CANCER
     Route: 058
     Dates: start: 20201001, end: 20201103
  7. ATROVENT [Suspect]
     Active Substance: IPRATROPIUM BROMIDE
     Indication: SPUTUM ABNORMAL
     Route: 055
     Dates: start: 20201025, end: 20201102
  8. LOW-MOLECULAR-WEIGHT HEPARINS SODIUM INJECTION [Suspect]
     Active Substance: HEPARIN SODIUM
     Indication: VENOUS THROMBOSIS
     Route: 058
     Dates: start: 20201027, end: 20201106
  9. OCTREOTIDE ACETATE FOR INJECTION [Suspect]
     Active Substance: OCTREOTIDE ACETATE
     Indication: RECTAL CANCER
     Route: 058
     Dates: start: 20201025, end: 20201031
  10. MUCOSOLVAN [Suspect]
     Active Substance: AMBROXOL HYDROCHLORIDE
     Indication: SPUTUM ABNORMAL
     Route: 041
     Dates: start: 20201025, end: 20201104
  11. SODIUM CHLORIDE INJECTION [Concomitant]
     Active Substance: SODIUM CHLORIDE
     Indication: ILL-DEFINED DISORDER
     Route: 055
     Dates: start: 20201025, end: 20201102
  12. PULMICORT RESPULES [Suspect]
     Active Substance: BUDESONIDE
     Indication: SPUTUM ABNORMAL
     Route: 055
     Dates: start: 20201025, end: 20201102
  13. SODIUM CHLORIDE INJECTION [Concomitant]
     Active Substance: SODIUM CHLORIDE
     Indication: ILL-DEFINED DISORDER
     Route: 041
     Dates: start: 20201025, end: 20201105
  14. SODIUM CHLORIDE INJECTION [Concomitant]
     Active Substance: SODIUM CHLORIDE
     Indication: ILL-DEFINED DISORDER
     Route: 041
     Dates: start: 20201025, end: 20201104

REACTIONS (1)
  - Hepatic function abnormal [Unknown]

NARRATIVE: CASE EVENT DATE: 20201105
